FAERS Safety Report 7153194-1 (Version None)
Quarter: 2010Q4

REPORT INFORMATION
  Report Type: 
  Country: None (occurrence: None)
  Receive Date: 20101213
  Receipt Date: 20101129
  Transmission Date: 20110411
  Serious: Yes (Hospitalization)
  Sender: FDA-Public Use
  Company Number: CA-ELI_LILLY_AND_COMPANY-CA201011007223

PATIENT
  Sex: Male

DRUGS (7)
  1. ZYPREXA [Suspect]
     Indication: SCHIZOPHRENIA
     Dosage: 5 MG, DAILY (1/D)
     Dates: start: 19970101
  2. ZYPREXA [Suspect]
     Dosage: 7.5 MG, DAILY (1/D)
  3. ZYPREXA [Suspect]
     Dosage: 10 MG, EACH EVENING
  4. ZYPREXA [Suspect]
     Dosage: 15 MG, EACH EVENING
  5. ZYPREXA [Suspect]
     Dosage: 20 MG, EACH EVENING
     Dates: end: 20071101
  6. NOVO-OLANZAPINE [Concomitant]
     Indication: SCHIZOPHRENIA
     Dosage: UNK, UNK
     Dates: start: 20071101
  7. SERTRALINE [Concomitant]

REACTIONS (10)
  - BLOOD ALKALINE PHOSPHATASE INCREASED [None]
  - DEEP VEIN THROMBOSIS [None]
  - DIABETES MELLITUS [None]
  - HYPERCHOLESTEROLAEMIA [None]
  - HYPERGLYCAEMIA [None]
  - HYPERTENSION [None]
  - ULCER HAEMORRHAGE [None]
  - URINE ALBUMIN/CREATININE RATIO INCREASED [None]
  - URINE PROTEIN/CREATININE RATIO INCREASED [None]
  - VISION BLURRED [None]
